FAERS Safety Report 10924782 (Version 1)
Quarter: 2015Q1

REPORT INFORMATION
  Report Type: Spontaneous
  Country: US (occurrence: None)
  Receive Date: 20150202
  Receipt Date: 20150202
  Transmission Date: 20150721
  Serious: Yes (Hospitalization)
  Sender: FDA-Public Use
  Company Number: TPA2013A06241

PATIENT
  Age: 75 Year
  Sex: Female

DRUGS (2)
  1. PLAVIX (CLOPIDOGREL BISULFATE) [Concomitant]
  2. DEXILANT [Suspect]
     Active Substance: DEXLANSOPRAZOLE
     Indication: GASTROOESOPHAGEAL REFLUX DISEASE
     Route: 048
     Dates: start: 20130503, end: 20130617

REACTIONS (2)
  - Cerebrovascular accident [None]
  - Drug administration error [None]

NARRATIVE: CASE EVENT DATE: 20130610
